FAERS Safety Report 22193899 (Version 2)
Quarter: 2023Q2

REPORT INFORMATION
  Report Type: Spontaneous
  Country: JP (occurrence: JP)
  Receive Date: 20230410
  Receipt Date: 20230502
  Transmission Date: 20230722
  Serious: Yes (Hospitalization, Other)
  Sender: FDA-Public Use
  Company Number: JP-TAIHO-2023-002433

PATIENT
  Age: 76 Year
  Sex: Female
  Weight: 34.4 kg

DRUGS (2)
  1. ABRAXANE [Suspect]
     Active Substance: PACLITAXEL
     Indication: Lung neoplasm malignant
     Dosage: ON DAYS 1, 8, AND 15; 3 DOSING DAYS, 1 CYCLE?DAILY DOSE: 110 MILLIGRAM(S)
     Route: 041
     Dates: start: 20201014, end: 20201028
  2. CARBOPLATIN [Suspect]
     Active Substance: CARBOPLATIN
     Indication: Lung neoplasm malignant
     Dosage: ON DAY 1, 1 CYCLE?DAILY DOSE: 300 MILLIGRAM(S)
     Route: 041
     Dates: start: 20201014, end: 20201014

REACTIONS (1)
  - Febrile neutropenia [Recovering/Resolving]

NARRATIVE: CASE EVENT DATE: 20201113
